FAERS Safety Report 15814813 (Version 1)
Quarter: 2019Q1

REPORT INFORMATION
  Report Type: Spontaneous
  Country: US (occurrence: US)
  Receive Date: 20190111
  Receipt Date: 20190111
  Transmission Date: 20190417
  Serious: Yes (Death)
  Sender: FDA-Public Use
  Company Number: US-INSYS THERAPEUTICS, INC-INS201901-000016

PATIENT
  Age: 38 Year
  Sex: Male

DRUGS (6)
  1. DRONABINOL. [Suspect]
     Active Substance: DRONABINOL
     Indication: PRODUCT USED FOR UNKNOWN INDICATION
  2. DESMETHYLSERTRALINE [Suspect]
     Active Substance: DESMETHYLSERTRALINE
  3. CYCLOPROPYLFENTANYL [Suspect]
     Active Substance: CYCLOPROPYLFENTANYL
  4. GABAPENTIN. [Suspect]
     Active Substance: GABAPENTIN
  5. 7-AMC (7-AMINOCLONAZEPAM) [Suspect]
     Active Substance: 7-AMINOCLONAZEPAM
  6. SERTRALINE [Suspect]
     Active Substance: SERTRALINE HYDROCHLORIDE

REACTIONS (1)
  - Death [Fatal]

NARRATIVE: CASE EVENT DATE: 2017
